FAERS Safety Report 13090423 (Version 1)
Quarter: 2017Q1

REPORT INFORMATION
  Report Type: Spontaneous
  Country: GB (occurrence: GB)
  Receive Date: 20170105
  Receipt Date: 20170105
  Transmission Date: 20170428
  Serious: Yes (Other)
  Sender: FDA-Public Use
  Company Number: GB-MYLANLABS-2017M1000013

PATIENT

DRUGS (4)
  1. DOXAZOSIN [Suspect]
     Active Substance: DOXAZOSIN\DOXAZOSIN MESYLATE
     Dosage: 2 MG, UNK
     Dates: start: 201512
  2. LOSARTAN. [Suspect]
     Active Substance: LOSARTAN
     Dosage: 50 MG, UNK
  3. LOSARTAN. [Suspect]
     Active Substance: LOSARTAN
     Indication: PRODUCT USED FOR UNKNOWN INDICATION
     Dosage: 75 MG, UNK
  4. DOXAZOSIN [Suspect]
     Active Substance: DOXAZOSIN\DOXAZOSIN MESYLATE
     Indication: HYPERTENSION
     Dosage: 1 MG, UNK

REACTIONS (15)
  - Blood pressure increased [Unknown]
  - Infection [Unknown]
  - Eye pain [Unknown]
  - Artificial crown procedure [Unknown]
  - Hypersensitivity [Unknown]
  - Contusion [Unknown]
  - Drug interaction [Unknown]
  - Erythema [Unknown]
  - Skin reaction [Unknown]
  - Rash [Unknown]
  - Excoriation [Unknown]
  - Scratch [Unknown]
  - Pruritus generalised [Unknown]
  - Joint swelling [Unknown]
  - Renal impairment [Unknown]

NARRATIVE: CASE EVENT DATE: 201512
